FAERS Safety Report 7299497-1 (Version None)
Quarter: 2011Q1

REPORT INFORMATION
  Report Type: 
  Country: None (occurrence: None)
  Receive Date: 20110209
  Receipt Date: 20110125
  Transmission Date: 20110831
  Serious: Yes (Hospitalization)
  Sender: FDA-Public Use
  Company Number: DSA_42685_2010

PATIENT
  Age: 60 Year
  Sex: Male

DRUGS (6)
  1. ASPIRIN [Concomitant]
  2. HERBESSER R (HERBESSER R - DILTIAZEM HYDROCHLORIDE) (NOT SPECIFIED) [Suspect]
     Indication: ANGINA UNSTABLE
     Dosage: (200 MG QD ORAL), (100 MG QD ORAL)
     Route: 048
     Dates: start: 20100107, end: 20100115
  3. HERBESSER R (HERBESSER R - DILTIAZEM HYDROCHLORIDE) (NOT SPECIFIED) [Suspect]
     Indication: ANGINA UNSTABLE
     Dosage: (200 MG QD ORAL), (100 MG QD ORAL)
     Route: 048
     Dates: start: 20100201, end: 20100201
  4. PARIET [Concomitant]
  5. LIPITOR [Concomitant]
  6. PLAVIX [Concomitant]

REACTIONS (7)
  - BLOOD BILIRUBIN INCREASED [None]
  - SKIN TEST POSITIVE [None]
  - HEPATIC FUNCTION ABNORMAL [None]
  - ACUTE GENERALISED EXANTHEMATOUS PUSTULOSIS [None]
  - ALANINE AMINOTRANSFERASE INCREASED [None]
  - GAMMA-GLUTAMYLTRANSFERASE INCREASED [None]
  - ASPARTATE AMINOTRANSFERASE INCREASED [None]
